FAERS Safety Report 8024239-1 (Version None)
Quarter: 2012Q1

REPORT INFORMATION
  Report Type: 
  Country: None (occurrence: None)
  Receive Date: 20120105
  Receipt Date: 20111028
  Transmission Date: 20120608
  Serious: Yes (Other)
  Sender: FDA-Public Use
  Company Number: PHHY2011BR86876

PATIENT
  Sex: Female

DRUGS (8)
  1. ASPIRIN [Concomitant]
     Indication: CEREBROVASCULAR ACCIDENT
     Dosage: 100 MG, (TWO TABLETS AFTER LUNCH)
     Route: 048
  2. INSULIN RAPID ^HOECHST MARION ROUSSEL^ [Concomitant]
     Indication: DIABETES MELLITUS
     Dosage: 10 U, (IN THE MORNING AND AT NIGHT)
  3. ATENOLOL [Concomitant]
     Dosage: 50 MG, (ONE TABLET IN THE MORNING, ONE TABLET AT NIGHT)
     Route: 048
  4. DIOVAN [Suspect]
     Indication: HYPERTENSION
     Dosage: 80 MG, (TWO TABLETS IN THE MORNING, TWO TABLETS AT NIGHT)
     Route: 048
  5. NPH INSULIN [Concomitant]
     Indication: DIABETES MELLITUS
     Dosage: 15 U, (IN THE MORNING AND AT NIGHT)
  6. ACETAMINOPHEN [Concomitant]
     Indication: BONE PAIN
     Dosage: 750 MG, (AT NIGHT)
     Route: 048
  7. DIOVAN [Suspect]
     Dosage: 80 MG, (TWO TABLETS IN THE MORNING, ONE AT NIGHT)
     Route: 048
  8. DIOVAN [Suspect]
     Dosage: 160 MG, (ONE TABLET IN THE MORNING ONE TABLET AT NIGHT)
     Route: 048

REACTIONS (5)
  - MEMORY IMPAIRMENT [None]
  - JOINT DISLOCATION [None]
  - SPINAL DISORDER [None]
  - FALL [None]
  - BLOOD PRESSURE FLUCTUATION [None]
